FAERS Safety Report 11851993 (Version 4)
Quarter: 2017Q4

REPORT INFORMATION
  Report Type: Report from Study
  Country: None (occurrence: CA)
  Receive Date: 20151218
  Receipt Date: 20171221
  Transmission Date: 20180320
  Serious: Yes (Other)
  Sender: FDA-Public Use
  Company Number: CA-ABBVIE-15K-028-1519147-00

PATIENT
  Sex: Male

DRUGS (2)
  1. HUMIRA [Suspect]
     Active Substance: ADALIMUMAB
     Route: 058
     Dates: end: 2017
  2. HUMIRA [Suspect]
     Active Substance: ADALIMUMAB
     Indication: CROHN^S DISEASE
     Route: 058
     Dates: start: 20150825

REACTIONS (9)
  - Procedural intestinal perforation [Recovering/Resolving]
  - Flatulence [Unknown]
  - Malaise [Recovered/Resolved]
  - Weight fluctuation [Not Recovered/Not Resolved]
  - Suture related complication [Unknown]
  - Purulent discharge [Unknown]
  - Gastrointestinal disorder [Not Recovered/Not Resolved]
  - Therapeutic response shortened [Not Recovered/Not Resolved]
  - Impaired healing [Unknown]

NARRATIVE: CASE EVENT DATE: 2015
